FAERS Safety Report 4738345-8 (Version None)
Quarter: 2005Q3

REPORT INFORMATION
  Report Type: 
  Country: None (occurrence: None)
  Receive Date: 20050728
  Receipt Date: 20050428
  Transmission Date: 20060218
  Serious: No
  Sender: FDA-Public Use
  Company Number: 200513065US

PATIENT
  Age: 51 Year
  Sex: Male

DRUGS (2)
  1. TELITHROMYCIN (KETEK) TABLETS [Suspect]
     Indication: SINUSITIS
     Dosage: 800 MG QD PO
     Route: 048
  2. NORVASC [Concomitant]

REACTIONS (3)
  - IRITIS [None]
  - PHOTOPHOBIA [None]
  - VISION BLURRED [None]
